FAERS Safety Report 22385153 (Version 3)
Quarter: 2023Q4

REPORT INFORMATION
  Report Type: Spontaneous
  Country: US (occurrence: US)
  Receive Date: 20230530
  Receipt Date: 20231006
  Transmission Date: 20240110
  Serious: No
  Sender: FDA-Public Use
  Company Number: US-PFIZER INC-PV202300094130

PATIENT
  Age: 70 Year
  Sex: Female
  Weight: 71.202 kg

DRUGS (1)
  1. IBRANCE [Suspect]
     Active Substance: PALBOCICLIB
     Indication: Breast cancer female
     Dosage: 125 MG, CYCLIC, (21DAYS ON 7 DAYS OFF )
     Dates: start: 201910

REACTIONS (1)
  - Memory impairment [Unknown]
